FAERS Safety Report 5551420-3 (Version None)
Quarter: 2007Q4

REPORT INFORMATION
  Report Type: 
  Country: None (occurrence: None)
  Receive Date: 20071129
  Receipt Date: 20070422
  Transmission Date: 20080405
  Serious: Yes (Disabling)
  Sender: FDA-Public Use
  Company Number: PHEH2007US02286

PATIENT
  Age: 62 Year
  Sex: Female
  Weight: 83.9 kg

DRUGS (24)
  1. LAMISIL [Suspect]
     Indication: ONYCHOMYCOSIS
     Dosage: 250 MG, QD, ORAL
     Route: 048
     Dates: start: 20061016, end: 20061216
  2. CELEXA [Concomitant]
  3. LEVOXYL [Concomitant]
  4. PRILOSEC [Concomitant]
  5. ASPIRIN [Concomitant]
  6. COZAAR [Concomitant]
  7. ATENOLOL [Concomitant]
  8. FOSAMAX [Concomitant]
  9. GLUCOSAMINE (GLUCOSAMINE) [Concomitant]
  10. CHONDROITIN SULFATE (CHONDROITIN SULFATE) [Concomitant]
  11. MANGANESE (MANGANESE) [Concomitant]
  12. MAGNESIUM (MAGNESIUM) [Concomitant]
  13. MULTIVITAMIN [Concomitant]
  14. CALCIUM (CALCIUM) [Concomitant]
  15. FLAXSEED OIL (LINUM USITATISSIMUM SEED OIL) [Concomitant]
  16. SELENIUM (SELENIUM) [Concomitant]
  17. GRAPE SEED EXTRACT (VITIS VINIFERA EXTRACT) [Concomitant]
  18. ASCORBIC ACID [Concomitant]
  19. GARLIC (ALLIUM SATIVUM) [Concomitant]
  20. VITAMIN E [Concomitant]
  21. B50 (CHLOROPHYLLIN SODIUM COPPER COMPLEX) [Concomitant]
  22. CELEBREX [Concomitant]
  23. ACTOS                        (PIOGLITAZONE, PIOGLITAZONE HYDROCHLORIDE [Concomitant]
  24. LIPITOR [Concomitant]

REACTIONS (5)
  - AGEUSIA [None]
  - ANOREXIA [None]
  - GASTROINTESTINAL TUBE INSERTION [None]
  - NAUSEA [None]
  - WEIGHT DECREASED [None]
